FAERS Safety Report 10885617 (Version 1)
Quarter: 2015Q1

REPORT INFORMATION
  Report Type: Spontaneous
  Country: US (occurrence: US)
  Receive Date: 20150304
  Receipt Date: 20150304
  Transmission Date: 20150721
  Serious: No
  Sender: FDA-Public Use
  Company Number: US-TEVA-542902USA

PATIENT
  Sex: Male

DRUGS (2)
  1. NUVIGIL [Suspect]
     Active Substance: ARMODAFINIL
     Dosage: 150 MILLIGRAM DAILY;
  2. METHADONE [Interacting]
     Active Substance: METHADONE HYDROCHLORIDE
     Dosage: 30 MILLIGRAM DAILY;

REACTIONS (2)
  - Drug interaction [Unknown]
  - Pain [Unknown]
